FAERS Safety Report 21263554 (Version 1)
Quarter: 2022Q3

REPORT INFORMATION
  Report Type: Spontaneous
  Country: US (occurrence: US)
  Receive Date: 20220829
  Receipt Date: 20220829
  Transmission Date: 20221027
  Serious: Yes (Other)
  Sender: FDA-Public Use
  Company Number: US-SANOFI-01243320

PATIENT
  Age: 61 Year
  Sex: Male

DRUGS (4)
  1. ELITEK [Suspect]
     Active Substance: RASBURICASE
     Indication: Neoplasm
     Dosage: DRUG TREATMENT DURATION:18AUG2022
     Dates: start: 20220818
  2. BENADRYL [Concomitant]
     Active Substance: DIPHENHYDRAMINE HYDROCHLORIDE
  3. AMENDO [Concomitant]
  4. DECADRON [Concomitant]
     Active Substance: DEXAMETHASONE

REACTIONS (6)
  - Oxygen saturation decreased [Recovered/Resolved]
  - Unresponsive to stimuli [Recovered/Resolved]
  - Respiration abnormal [Recovered/Resolved]
  - Pallor [Recovered/Resolved]
  - Cold sweat [Recovered/Resolved]
  - Headache [Recovered/Resolved]
